FAERS Safety Report 17768530 (Version 3)
Quarter: 2025Q3

REPORT INFORMATION
  Report Type: Spontaneous
  Country: EU (occurrence: EU)
  Receive Date: 20200512
  Receipt Date: 20250709
  Transmission Date: 20251020
  Serious: Yes (Other)
  Sender: AUROBINDO
  Company Number: EU-KRKA-PL2020K06857LIT

PATIENT
  Age: 45 Year
  Sex: Female

DRUGS (11)
  1. LETROZOLE [Suspect]
     Active Substance: LETROZOLE
     Indication: Hormone therapy
     Dosage: 2.5 MILLIGRAM, ONCE A DAY
     Route: 058
  2. LETROZOLE [Suspect]
     Active Substance: LETROZOLE
     Indication: Breast cancer
  3. ACETAMINOPHEN [Suspect]
     Active Substance: ACETAMINOPHEN
     Indication: Analgesic therapy
     Dosage: 600 MILLIGRAM, TWO TIMES A DAY (1300 MILLIGRAM, ONCE A DAY)
     Route: 065
  4. ACETAMINOPHEN [Suspect]
     Active Substance: ACETAMINOPHEN
     Dosage: 650 MILLIGRAM, TWO TIMES A DAY
     Route: 065
  5. TRAMADOL [Suspect]
     Active Substance: TRAMADOL
     Indication: Analgesic therapy
     Route: 065
  6. CALCIUM [Suspect]
     Active Substance: CALCIUM
     Indication: Product used for unknown indication
     Route: 065
  7. CHOLECALCIFEROL [Suspect]
     Active Substance: CHOLECALCIFEROL
     Indication: Product used for unknown indication
     Route: 065
  8. GOSERELIN [Suspect]
     Active Substance: GOSERELIN
     Indication: Hormone therapy
     Route: 058
  9. GOSERELIN [Suspect]
     Active Substance: GOSERELIN
     Indication: Breast cancer
  10. RIBOCICLIB [Suspect]
     Active Substance: RIBOCICLIB
     Indication: Breast cancer
     Dosage: 200 MILLIGRAM, 3 TIMES A DAY (600 MILLIGRAM ONCE A DAY)
     Route: 065
  11. ZOLEDRONIC ACID [Suspect]
     Active Substance: ZOLEDRONIC ACID
     Indication: Product used for unknown indication
     Route: 042

REACTIONS (2)
  - Neutropenia [Unknown]
  - Blood disorder [Unknown]
